FAERS Safety Report 6879167-1 (Version None)
Quarter: 2010Q3

REPORT INFORMATION
  Report Type: 
  Country: None (occurrence: None)
  Receive Date: 20100728
  Receipt Date: 20100722
  Transmission Date: 20110219
  Serious: Yes (Death, Other)
  Sender: FDA-Public Use
  Company Number: PHHY2010US35163

PATIENT
  Sex: Male
  Weight: 56.599 kg

DRUGS (1)
  1. EXJADE [Suspect]
     Indication: MYELODYSPLASTIC SYNDROME
     Dosage: 1125 MG, QD
     Route: 048
     Dates: start: 20091022, end: 20100515

REACTIONS (2)
  - MALIGNANT NEOPLASM PROGRESSION [None]
  - SERUM FERRITIN INCREASED [None]
